FAERS Safety Report 9216425 (Version 2)
Quarter: 2013Q1

REPORT INFORMATION
  Report Type: Spontaneous
  Country: US (occurrence: None)
  Receive Date: 20130211
  Receipt Date: 20130219
  Transmission Date: 20140127
  Serious: Yes (Death)
  Sender: FDA-Public Use
  Company Number: DKLU1088748

PATIENT
  Age: 38 Year
  Sex: Female

DRUGS (1)
  1. SABRIL (FOR ORAL SOLUTION)(SABRIL)(VIGABATRIN)(500 MG, POWDER FOR ORAL SOLUTION) [Suspect]
     Indication: COMPLEX PARTIAL SEIZURES
     Dosage: 2000 MG MILLIGRAM(S), AM, ORAL
     Route: 048
     Dates: start: 20100413

REACTIONS (1)
  - Death [None]
